FAERS Safety Report 17298900 (Version 2)
Quarter: 2020Q1

REPORT INFORMATION
  Report Type: Report from Study
  Country: BE (occurrence: BE)
  Receive Date: 20200121
  Receipt Date: 20200327
  Transmission Date: 20200409
  Serious: Yes (Death, Other)
  Sender: FDA-Public Use
  Company Number: BE-PFIZER INC-2020024165

PATIENT
  Age: 67 Year
  Sex: Female
  Weight: 65 kg

DRUGS (6)
  1. IRINOTECAN HCL [Suspect]
     Active Substance: IRINOTECAN HYDROCHLORIDE
     Indication: COLORECTAL CANCER METASTATIC
     Dosage: 225 MG, CYCLIC (EVERY 2 WEEKS)
     Route: 065
     Dates: start: 20171006, end: 20180125
  2. BEVACIZUMAB. [Suspect]
     Active Substance: BEVACIZUMAB
     Indication: COLORECTAL CANCER METASTATIC
     Dosage: 315 MG, CYCLIC (EVERY 2 WEEKS)
     Route: 042
     Dates: start: 20171006, end: 20180125
  3. FOLINIC ACID [Suspect]
     Active Substance: LEUCOVORIN
     Indication: COLORECTAL CANCER METASTATIC
     Dosage: 3 MG, CYCLIC (EVERY 2 WEEKS)
     Route: 042
     Dates: start: 20171006, end: 20180125
  4. GLUCOPHAGE [Concomitant]
     Active Substance: METFORMIN HYDROCHLORIDE
     Dosage: UNK
  5. FLUOROURACIL. [Suspect]
     Active Substance: FLUOROURACIL
     Indication: COLORECTAL CANCER METASTATIC
     Dosage: 3 MG, UNK
     Route: 042
     Dates: start: 20171006, end: 20180125
  6. LEVOTHYROXINE. [Concomitant]
     Active Substance: LEVOTHYROXINE
     Indication: HYPOTHYROIDISM
     Dosage: UNK

REACTIONS (8)
  - Neutropenia [Recovered/Resolved]
  - Constipation [Not Recovered/Not Resolved]
  - Rectal haemorrhage [Recovered/Resolved]
  - Haemorrhoidal haemorrhage [Not Recovered/Not Resolved]
  - General physical health deterioration [Fatal]
  - Erythema [Recovered/Resolved]
  - Diarrhoea [Recovered/Resolved]
  - Alopecia [Not Recovered/Not Resolved]

NARRATIVE: CASE EVENT DATE: 20171006
